FAERS Safety Report 23462477 (Version 1)
Quarter: 2024Q1

REPORT INFORMATION
  Report Type: Spontaneous
  Country: US (occurrence: None)
  Receive Date: 20240131
  Receipt Date: 20240131
  Transmission Date: 20240410
  Serious: Yes (Hospitalization)
  Sender: FDA-Public Use
  Company Number: None

PATIENT
  Age: 87 Year
  Sex: Male
  Weight: 117.3 kg

DRUGS (13)
  1. FLUOROURACIL [Suspect]
     Active Substance: FLUOROURACIL
     Dates: end: 20231109
  2. GEMCITABINE HYDROCHLORIDE [Suspect]
     Active Substance: GEMCITABINE HYDROCHLORIDE
     Dates: end: 20231226
  3. IRINOTECAN SUCROSOFATE [Suspect]
     Active Substance: IRINOTECAN SUCROSOFATE
     Dates: end: 20231109
  4. LEUCOVORIN CALCIUM [Suspect]
     Active Substance: LEUCOVORIN CALCIUM
     Dates: end: 20231109
  5. PACLITAXEL [Suspect]
     Active Substance: PACLITAXEL
     Dates: end: 20231226
  6. ABRAXANE [Concomitant]
     Active Substance: PACLITAXEL
  7. Aspirin [Concomitant]
  8. DEXAMETHASONE [Concomitant]
  9. FINASTERIDE [Concomitant]
     Active Substance: FINASTERIDE
  10. GEMCITABINE [Concomitant]
  11. LASIX [Concomitant]
     Active Substance: FUROSEMIDE
  12. POTASSIUM CHLORIDE [Concomitant]
     Active Substance: POTASSIUM CHLORIDE
  13. TRAMADOL [Concomitant]

REACTIONS (14)
  - Hypoxia [None]
  - Asthenia [None]
  - Fall [None]
  - Dyspnoea [None]
  - Acute respiratory failure [None]
  - Bronchiolitis [None]
  - Pulmonary embolism [None]
  - Metastases to peritoneum [None]
  - General physical health deterioration [None]
  - Mental status changes [None]
  - Ascites [None]
  - Pleural effusion [None]
  - Malignant neoplasm progression [None]
  - Atelectasis [None]

NARRATIVE: CASE EVENT DATE: 20231221
